FAERS Safety Report 6388229-7 (Version None)
Quarter: 2009Q4

REPORT INFORMATION
  Report Type: 
  Country: None (occurrence: None)
  Receive Date: 20091001
  Receipt Date: 20091001
  Transmission Date: 20100525
  Serious: No
  Sender: FDA-Public Use
  Company Number: None

PATIENT
  Age: 60 Year
  Sex: Male
  Weight: 77.3 kg

DRUGS (1)
  1. MORPHINE [Suspect]
     Indication: PAIN
     Dosage: 4MG OTHER IV
     Route: 042
     Dates: start: 20090814, end: 20090814

REACTIONS (3)
  - ANGIOEDEMA [None]
  - SINUS TACHYCARDIA [None]
  - VENTRICULAR EXTRASYSTOLES [None]
